FAERS Safety Report 23854597 (Version 1)
Quarter: 2024Q2

REPORT INFORMATION
  Report Type: Spontaneous
  Country: RU (occurrence: None)
  Receive Date: 20240514
  Receipt Date: 20240514
  Transmission Date: 20240715
  Serious: Yes (Hospitalization, Other)
  Sender: FDA-Public Use
  Company Number: 2024A108090

PATIENT
  Age: 11 Year
  Sex: Female
  Weight: 63 kg

DRUGS (1)
  1. KOSELUGO [Suspect]
     Active Substance: SELUMETINIB
     Route: 048
     Dates: start: 20230426

REACTIONS (2)
  - Erysipelas [Unknown]
  - Pyrexia [Unknown]

NARRATIVE: CASE EVENT DATE: 20240422
